FAERS Safety Report 18241994 (Version 1)
Quarter: 2020Q3

REPORT INFORMATION
  Report Type: Spontaneous
  Country: US (occurrence: US)
  Receive Date: 20200908
  Receipt Date: 20200908
  Transmission Date: 20201103
  Serious: Yes (Other)
  Sender: FDA-Public Use
  Company Number: US-AMGEN-USASP2020142198

PATIENT
  Age: 75 Year
  Sex: Female

DRUGS (2)
  1. TALIMOGENE LAHERPAREPVEC [Suspect]
     Active Substance: TALIMOGENE LAHERPAREPVEC
     Dosage: 0.1 MILLILITER, CYCLICAL (TWO INJECTIONS)
     Route: 026
  2. TALIMOGENE LAHERPAREPVEC [Suspect]
     Active Substance: TALIMOGENE LAHERPAREPVEC
     Indication: METASTATIC MALIGNANT MELANOMA
     Dosage: 0.1 MILLILITER, CYCLICAL (FIRST INJECTION 10^6 PFU/ML FOLLOWED BY 10^8 PFU/ML THREE WEEKS LATER))
     Route: 026

REACTIONS (3)
  - Fatigue [Unknown]
  - Chills [Unknown]
  - Melanoma recurrent [Unknown]
